FAERS Safety Report 5745196-4 (Version None)
Quarter: 2008Q2

REPORT INFORMATION
  Report Type: 
  Country: None (occurrence: None)
  Receive Date: 20080521
  Receipt Date: 20080515
  Transmission Date: 20081010
  Serious: Yes (Other)
  Sender: FDA-Public Use
  Company Number: A0666042A

PATIENT
  Age: 54 Year
  Sex: Female

DRUGS (5)
  1. IMITREX [Suspect]
     Indication: MIGRAINE
     Dosage: 50MG VARIABLE DOSE
     Route: 048
     Dates: start: 19990601, end: 20030101
  2. IMITREX [Suspect]
     Dates: end: 20071201
  3. ZOLMITRIPTAN [Suspect]
     Indication: MIGRAINE
     Route: 065
  4. ANTI-INFLAMMATORY [Concomitant]
  5. NAPROXEN [Concomitant]

REACTIONS (4)
  - ADVERSE EVENT [None]
  - DEPENDENCE [None]
  - DRUG INEFFECTIVE [None]
  - GASTROOESOPHAGEAL REFLUX DISEASE [None]
